FAERS Safety Report 7434701-8 (Version None)
Quarter: 2011Q2

REPORT INFORMATION
  Report Type: 
  Country: None (occurrence: None)
  Receive Date: 20110425
  Receipt Date: 20100110
  Transmission Date: 20111010
  Serious: Yes (Death, Other)
  Sender: FDA-Public Use
  Company Number: US-BAYER-201010474NA

PATIENT
  Age: 78 Year
  Sex: Female
  Weight: 82.55 kg

DRUGS (22)
  1. DOPAMINE [Concomitant]
     Dosage: TITRATED
     Route: 042
     Dates: start: 20050214, end: 20050220
  2. AMIODARONE [Concomitant]
     Dosage: 200 MG, PREOPERATIVE
     Route: 048
     Dates: start: 20050214
  3. FENTANYL [Concomitant]
     Dosage: 2.5 MG, UNK
     Route: 042
     Dates: start: 20050214
  4. PANCURONIUM BROMIDE [Concomitant]
     Dosage: 10 MG, UNK
     Route: 042
     Dates: start: 20050214, end: 20050214
  5. TRASYLOL [Suspect]
     Indication: AORTIC ANEURYSM REPAIR
     Dosage: 1ML TEST DOSE, 200ML PER ANESTHESIA, 200ML CARDIOPULMONARY BYPASS PRIME
     Route: 042
     Dates: start: 20050214, end: 20050214
  6. LASIX [Concomitant]
     Dosage: 40 MG, QD
     Route: 048
     Dates: start: 20040818
  7. ANCEF [Concomitant]
     Dosage: 1 G, UNK
     Route: 042
     Dates: start: 20050214
  8. ALBUMIN (HUMAN) [Concomitant]
     Dosage: 100 ML, PRIME/CARDIOPULMONARY BYPASS
     Dates: start: 20050214
  9. AMIODARONE [Concomitant]
     Dosage: 150 MG, UNK
     Route: 042
     Dates: start: 20050214
  10. HEPARIN [Concomitant]
     Dosage: 24000 U, UNK
     Route: 042
     Dates: start: 20050214
  11. PROTAMINE SULFATE [Concomitant]
     Dosage: 280 MG, UNK
     Route: 042
     Dates: start: 20050214, end: 20050214
  12. LIDOCAINE [Concomitant]
     Dosage: 100 MG, CARDIOPULMONARY BYPASS
     Dates: start: 20050214, end: 20050214
  13. NORVASC [Concomitant]
     Dosage: 20 MG, QD
     Route: 048
     Dates: start: 20040818
  14. HEPARIN [Concomitant]
     Dosage: 10000 U, PRIME
     Dates: start: 20050214
  15. TOPROL-XL [Concomitant]
     Dosage: 100 MG, QD
     Route: 048
     Dates: start: 20040818, end: 20050214
  16. ACETYLSALICYLIC ACID SRT [Concomitant]
     Dosage: 325 MG, QD
     Route: 048
  17. CARDIOPLEGIA [Concomitant]
     Dosage: 700 ML, CARDIOPULMONARY BYPASS
     Dates: start: 20050214, end: 20050214
  18. VERSED [Concomitant]
     Dosage: 15 MG, UNK
     Route: 042
     Dates: start: 20050214, end: 20050214
  19. PLATELETS [Concomitant]
     Dosage: 235CC
     Dates: start: 20050214
  20. LASIX [Concomitant]
     Dosage: 80 MG, PRIME
     Dates: start: 20050214
  21. VANCOMYCIN [Concomitant]
     Dosage: 1 G, UNK
     Route: 042
     Dates: start: 20050214
  22. RED BLOOD CELLS [Concomitant]
     Dosage: 1000CC
     Dates: start: 20051002

REACTIONS (12)
  - DEPRESSION [None]
  - EMOTIONAL DISTRESS [None]
  - INJURY [None]
  - DEATH [None]
  - RENAL FAILURE [None]
  - UNEVALUABLE EVENT [None]
  - CEREBROVASCULAR ACCIDENT [None]
  - FEAR [None]
  - ANXIETY [None]
  - PAIN [None]
  - ANHEDONIA [None]
  - MYOCARDIAL INFARCTION [None]
